FAERS Safety Report 10074062 (Version 1)
Quarter: 2014Q2

REPORT INFORMATION
  Report Type: Spontaneous
  Country: NL (occurrence: NL)
  Receive Date: 20140413
  Receipt Date: 20140413
  Transmission Date: 20141212
  Serious: Yes (Other)
  Sender: FDA-Public Use
  Company Number: NL-MYLANLABS-2014S1007776

PATIENT
  Age: 73 Year
  Sex: Male

DRUGS (3)
  1. ACETAZOLAMIDE [Suspect]
     Indication: METABOLIC ALKALOSIS
     Dosage: 500MG DAILY
     Route: 065
  2. ACETAZOLAMIDE [Suspect]
     Indication: WEANING FAILURE
     Dosage: 500MG DAILY
     Route: 065
  3. FUROSEMIDE [Suspect]
     Indication: GENERALISED OEDEMA
     Route: 065

REACTIONS (2)
  - Hyperammonaemia [Recovered/Resolved]
  - Metabolic alkalosis [Unknown]
